FAERS Safety Report 9887649 (Version 1)
Quarter: 2014Q1

REPORT INFORMATION
  Report Type: Spontaneous
  Country: FR (occurrence: FR)
  Receive Date: 20140211
  Receipt Date: 20140211
  Transmission Date: 20141002
  Serious: Yes (Hospitalization)
  Sender: FDA-Public Use
  Company Number: FR-AMGEN-FRASP2014009392

PATIENT
  Age: 78 Year
  Sex: Female

DRUGS (9)
  1. VECTIBIX [Suspect]
     Indication: PRODUCT USED FOR UNKNOWN INDICATION
     Dosage: UNK
     Route: 065
     Dates: start: 20130204
  2. FLUOROURACIL [Concomitant]
     Dosage: UNK
     Route: 042
     Dates: start: 20111012
  3. IRINOTECAN [Concomitant]
     Dosage: UNK
     Route: 042
     Dates: start: 20111012
  4. AVASTIN                            /01555201/ [Concomitant]
     Dosage: UNK
     Dates: start: 20111012, end: 20130114
  5. ALTIZIDE W/SPIRONOLACTONE [Concomitant]
     Indication: HYPERTENSION
     Dosage: UNK
  6. ACEBUTOLOL [Concomitant]
     Indication: HYPERTENSION
     Dosage: UNK
  7. AZANTAC [Concomitant]
     Dosage: UNK
  8. TEMESTA                            /00637601/ [Concomitant]
     Dosage: UNK
  9. GAVISCON                           /01279001/ [Concomitant]
     Indication: HYPERTENSION
     Dosage: UNK

REACTIONS (1)
  - Pulmonary embolism [Recovered/Resolved]
